FAERS Safety Report 5035414-2 (Version None)
Quarter: 2006Q2

REPORT INFORMATION
  Report Type: 
  Country: None (occurrence: None)
  Receive Date: 20060526
  Receipt Date: 20060207
  Transmission Date: 20061013
  Serious: No
  Sender: FDA-Public Use
  Company Number: FABR-11394

PATIENT
  Age: 62 Year
  Sex: Female
  Weight: 95 kg

DRUGS (2)
  1. FABRAZYME [Suspect]
     Indication: FABRY'S DISEASE
     Dosage: 95 MG Q2WKS IV
     Route: 042
     Dates: start: 20050803
  2. BENADRYL [Concomitant]

REACTIONS (3)
  - PRURITUS [None]
  - SENSATION OF FOREIGN BODY [None]
  - VISUAL DISTURBANCE [None]
